FAERS Safety Report 18556573 (Version 1)
Quarter: 2020Q4

REPORT INFORMATION
  Report Type: Spontaneous
  Country: US (occurrence: US)
  Receive Date: 20201128
  Receipt Date: 20201128
  Transmission Date: 20210114
  Serious: No
  Sender: FDA-Public Use
  Company Number: US-JNJFOC-20201139059

PATIENT
  Sex: Female

DRUGS (1)
  1. STELARA [Suspect]
     Active Substance: USTEKINUMAB
     Indication: CROHN^S DISEASE
     Route: 058
     Dates: start: 20201030, end: 20201030

REACTIONS (3)
  - Abdominal pain [Unknown]
  - Product storage error [Unknown]
  - Nausea [Unknown]

NARRATIVE: CASE EVENT DATE: 20201030
